FAERS Safety Report 7260270-1 (Version None)
Quarter: 2011Q1

REPORT INFORMATION
  Report Type: 
  Country: None (occurrence: None)
  Receive Date: 20110130
  Receipt Date: 20100907
  Transmission Date: 20110831
  Serious: No
  Sender: FDA-Public Use
  Company Number: US-ABBOTT-10P-163-0670078-00

PATIENT
  Sex: Female
  Weight: 76.726 kg

DRUGS (5)
  1. HUMIRA [Suspect]
     Indication: PSORIASIS
  2. GABAPENTIN [Concomitant]
     Indication: NEUROPATHY PERIPHERAL
  3. HUMIRA [Suspect]
     Indication: PSORIATIC ARTHROPATHY
     Dates: start: 20080101
  4. AMITRIPTYLINE HCL [Concomitant]
     Indication: NEUROPATHY PERIPHERAL
  5. UNKNOWN VITAMINS [Concomitant]
     Indication: VITAMIN SUPPLEMENTATION

REACTIONS (3)
  - WEIGHT INCREASED [None]
  - SKIN DISCOLOURATION [None]
  - URTICARIA [None]
